FAERS Safety Report 5573823-3 (Version None)
Quarter: 2007Q4

REPORT INFORMATION
  Report Type: 
  Country: None (occurrence: None)
  Receive Date: 20071226
  Receipt Date: 20071214
  Transmission Date: 20080405
  Serious: Yes (Other)
  Sender: FDA-Public Use
  Company Number: US-PFIZER INC-2007106422

PATIENT
  Sex: Female
  Weight: 59.09 kg

DRUGS (8)
  1. CHANTIX [Suspect]
     Indication: SMOKING CESSATION THERAPY
     Dosage: TEXT:1MG BID EVERYDAY TDD:2MG
     Dates: start: 20070601, end: 20071001
  2. OXYCODONE HCL [Concomitant]
  3. ALPRAZOLAM [Concomitant]
  4. VITAMINS [Concomitant]
  5. VITAMIN B COMPLEX CAP [Concomitant]
  6. CALCIUM [Concomitant]
  7. SOMA [Concomitant]
  8. ASPIRIN [Concomitant]

REACTIONS (8)
  - CEREBROVASCULAR ACCIDENT [None]
  - CONVULSION [None]
  - DEPRESSION [None]
  - EXTREMITY CONTRACTURE [None]
  - FACIAL PALSY [None]
  - GAIT DISTURBANCE [None]
  - SPEECH DISORDER [None]
  - SUICIDAL IDEATION [None]
